FAERS Safety Report 9796326 (Version 1)
Quarter: 2014Q1

REPORT INFORMATION
  Report Type: Spontaneous
  Country: US (occurrence: US)
  Receive Date: 20140103
  Receipt Date: 20140103
  Transmission Date: 20141002
  Serious: Yes (Other)
  Sender: FDA-Public Use
  Company Number: US-MALLINCKRODT-T201304646

PATIENT
  Age: 67 Year
  Sex: Female

DRUGS (16)
  1. EXALGO EXTENDED RELEASE [Suspect]
     Indication: BACK PAIN
     Dosage: 32 MG, QD
     Route: 048
     Dates: start: 201309
  2. EXALGO EXTENDED RELEASE [Suspect]
     Indication: NECK PAIN
  3. PHENERGAN                          /00033001/ [Concomitant]
     Indication: NAUSEA
     Dosage: 25 MG, PRN
     Route: 048
  4. NORCO [Concomitant]
     Indication: BACK PAIN
     Dosage: 10/325 MG, Q 6 HRS, PRN
     Route: 048
  5. CARISOPRODOL [Concomitant]
     Indication: CONVULSION
     Dosage: UNK
     Route: 048
  6. TOPAMAX [Concomitant]
     Indication: CONVULSION
     Dosage: 100 MG, QD
     Route: 048
  7. TOPAMAX [Concomitant]
     Indication: MIGRAINE
  8. LORAZEPAM [Concomitant]
     Indication: ANXIETY
     Dosage: 0.5 MG, QD
     Route: 048
  9. ATROVENT [Concomitant]
     Indication: CHRONIC OBSTRUCTIVE PULMONARY DISEASE
     Dosage: UNK, QD
     Route: 050
     Dates: start: 201310
  10. KEPPRA [Concomitant]
     Indication: CONVULSION
     Dosage: 500 MG, BID
     Route: 048
     Dates: start: 201309
  11. SPIRIVA [Concomitant]
     Indication: CHRONIC OBSTRUCTIVE PULMONARY DISEASE
     Dosage: 1 INHALATION, QD
     Route: 050
  12. AMITIZA [Concomitant]
     Indication: DYSPEPSIA
     Dosage: 24 MG, BID
     Route: 048
  13. DEXILANT [Concomitant]
     Indication: GASTROOESOPHAGEAL REFLUX DISEASE
     Dosage: 60 MG, QD
     Route: 048
  14. ASPIRIN [Concomitant]
     Indication: PROPHYLAXIS
     Dosage: 325 MG, QD
     Route: 048
  15. FUROSEMIDE [Concomitant]
     Indication: DIURETIC THERAPY
     Dosage: 40 MG, QD
     Route: 048
  16. TRAZODONE [Concomitant]
     Indication: SLEEP DISORDER
     Dosage: 150 MG X 2, QHS
     Route: 048

REACTIONS (4)
  - Convulsion [Not Recovered/Not Resolved]
  - Agitation [Not Recovered/Not Resolved]
  - Drug effect decreased [Not Recovered/Not Resolved]
  - Medication residue present [Not Recovered/Not Resolved]
